FAERS Safety Report 6208516-2 (Version None)
Quarter: 2009Q2

REPORT INFORMATION
  Report Type: 
  Country: None (occurrence: None)
  Receive Date: 20090522
  Receipt Date: 20090224
  Transmission Date: 20091009
  Serious: No
  Sender: FDA-Public Use
  Company Number: 8043477

PATIENT
  Age: 18 Year
  Sex: Male
  Weight: 42.1 kg

DRUGS (3)
  1. CIMZIA [Suspect]
     Indication: CROHN'S DISEASE
     Dosage: 400 MG SC
     Route: 058
     Dates: start: 20090102
  2. ENTOCORT EC [Concomitant]
  3. FLAGYL [Concomitant]

REACTIONS (4)
  - ABDOMINAL PAIN [None]
  - NASOPHARYNGITIS [None]
  - PYREXIA [None]
  - WEIGHT DECREASED [None]
